FAERS Safety Report 9522836 (Version 6)
Quarter: 2014Q4

REPORT INFORMATION
  Report Type: Report from Study
  Country: CA (occurrence: CA)
  Receive Date: 20130913
  Receipt Date: 20141211
  Transmission Date: 20150529
  Serious: Yes (Other)
  Sender: FDA-Public Use
  Company Number: CA-ROCHE-1274213

PATIENT
  Age: 56 Year
  Sex: Female
  Weight: 59 kg

DRUGS (6)
  1. TRAMADOL [Concomitant]
     Active Substance: TRAMADOL
  2. ACTEMRA [Suspect]
     Active Substance: TOCILIZUMAB
     Dosage: LAST DOSE PRIOR TO SAE:07/AUG/2013
     Route: 042
     Dates: start: 20130308
  3. ACTEMRA [Suspect]
     Active Substance: TOCILIZUMAB
     Route: 042
     Dates: start: 20130405
  4. HYDROXYQUINOLINE [Concomitant]
  5. ACTEMRA [Suspect]
     Active Substance: TOCILIZUMAB
     Indication: RHEUMATOID ARTHRITIS
     Dosage: LAST DOSE PRIOR TO SAE:07/AUG/2013
     Route: 042
     Dates: start: 20111213
  6. ACTEMRA [Suspect]
     Active Substance: TOCILIZUMAB
     Route: 042
     Dates: start: 20141104

REACTIONS (3)
  - Foot fracture [Recovering/Resolving]
  - Hypotension [Recovered/Resolved]
  - Hernia [Unknown]

NARRATIVE: CASE EVENT DATE: 2013
